FAERS Safety Report 5045299-6 (Version None)
Quarter: 2006Q3

REPORT INFORMATION
  Report Type: 
  Country: None (occurrence: None)
  Receive Date: 20060707
  Receipt Date: 20060627
  Transmission Date: 20061208
  Serious: Yes (Hospitalization, Other)
  Sender: FDA-Public Use
  Company Number: NL-ABBOTT-06P-114-0337066-00

PATIENT
  Age: 82 Year
  Sex: Female

DRUGS (4)
  1. BIPERIDEN HYDROCHLORIDE TAB [Suspect]
     Indication: TREMOR
  2. FLUOXETINE [Concomitant]
     Indication: DEPRESSION
     Dosage: NOT REPORTED
  3. HYDROCHLOROTHIAZIDE [Concomitant]
     Indication: HYPERTENSION
  4. PROPRANOLOL [Concomitant]
     Indication: HYPERTENSION

REACTIONS (3)
  - DEMENTIA [None]
  - GAIT DISTURBANCE [None]
  - HIP FRACTURE [None]
